FAERS Safety Report 20819857 (Version 1)
Quarter: 2022Q2

REPORT INFORMATION
  Report Type: Spontaneous
  Country: US (occurrence: None)
  Receive Date: 20220511
  Receipt Date: 20220511
  Transmission Date: 20220721
  Serious: Yes (Other)
  Sender: FDA-Public Use
  Company Number: None

PATIENT
  Age: 68 Year
  Sex: Female
  Weight: 79.38 kg

DRUGS (5)
  1. .DELTA.8-TETRAHYDROCANNABINOL\HERBALS [Suspect]
     Active Substance: .DELTA.8-TETRAHYDROCANNABINOL\HERBALS
     Indication: Sleep disorder
     Dosage: FREQUENCY : ONCE;?
     Route: 048
     Dates: start: 20220115, end: 20220115
  2. QUETIAPINE [Concomitant]
     Active Substance: QUETIAPINE
  3. Fumarate [Concomitant]
  4. LISINOPRIL [Concomitant]
     Active Substance: LISINOPRIL
  5. ATORVASTATIN [Concomitant]
     Active Substance: ATORVASTATIN

REACTIONS (4)
  - Speech disorder [None]
  - Psychomotor skills impaired [None]
  - Heart rate increased [None]
  - Loss of consciousness [None]

NARRATIVE: CASE EVENT DATE: 20220115
